FAERS Safety Report 6431712-6 (Version None)
Quarter: 2009Q4

REPORT INFORMATION
  Report Type: 
  Country: None (occurrence: None)
  Receive Date: 20091103
  Receipt Date: 20091019
  Transmission Date: 20100525
  Serious: Yes (Hospitalization)
  Sender: FDA-Public Use
  Company Number: 02100-JPN-07-0201

PATIENT
  Age: 62 Year
  Sex: Male
  Weight: 52 kg

DRUGS (6)
  1. PLETAL [Suspect]
     Indication: CEREBRAL INFARCTION
     Dosage: 81 MG, QD, ORAL
     Route: 048
     Dates: start: 20061027, end: 20070411
  2. NORVASC [Concomitant]
  3. BASEN (VOGLIBOSE) TABLET [Concomitant]
  4. CATLEP (INDOMETACIN) TAPE (INCLUDING POULTICE) [Concomitant]
  5. LOXONIN (LOXOPROFEN SODIUM) TABLET [Concomitant]
  6. MUCOSTA (REBAMIPIDE) TABLET [Concomitant]

REACTIONS (2)
  - GASTRIC ULCER HAEMORRHAGE [None]
  - HELICOBACTER INFECTION [None]
